FAERS Safety Report 7209858-4 (Version None)
Quarter: 2011Q1

REPORT INFORMATION
  Report Type: 
  Country: None (occurrence: None)
  Receive Date: 20110104
  Receipt Date: 20101231
  Transmission Date: 20110831
  Serious: Yes (Death)
  Sender: FDA-Public Use
  Company Number: US-ASTRAZENECA-2011SE00087

PATIENT
  Age: 70 Year
  Sex: Female

DRUGS (18)
  1. MELOXICAM [Suspect]
     Route: 048
  2. HYDROMORPHONE HCL [Suspect]
     Route: 048
  3. CYCLOBENZAPRINE [Suspect]
     Route: 048
  4. FLUOXETINE [Suspect]
     Route: 048
  5. TORSEMIDE [Suspect]
     Route: 048
  6. LOVASTATIN [Suspect]
     Route: 048
  7. ACETAMINOPHEN [Suspect]
     Route: 048
  8. CLONAZEPAM [Suspect]
     Route: 048
  9. CHLORDIAZEPOXIDE [Suspect]
     Route: 048
  10. VITAMINS-MULTIPLE [Suspect]
     Route: 048
  11. CALCIUM [Suspect]
     Route: 048
  12. DULOXETIME HYDROCHLORIDE [Suspect]
     Route: 048
  13. LISINOPRIL [Suspect]
     Route: 048
  14. DESIPRAMINE HCL [Suspect]
     Route: 048
  15. PREGABALIN [Suspect]
     Route: 048
  16. METHADONE [Suspect]
     Route: 048
  17. ACETAMINOPHEN AND OXYCODONE HCL [Suspect]
     Route: 048
  18. FOLIC ACID [Suspect]
     Route: 048

REACTIONS (2)
  - COMPLETED SUICIDE [None]
  - TOXICITY TO VARIOUS AGENTS [None]
